FAERS Safety Report 18292905 (Version 1)
Quarter: 2020Q3

REPORT INFORMATION
  Report Type: Spontaneous
  Country: SE (occurrence: SE)
  Receive Date: 20200922
  Receipt Date: 20200922
  Transmission Date: 20201103
  Serious: Yes (Other)
  Sender: FDA-Public Use
  Company Number: NVSC2020SE252470

PATIENT
  Sex: Female
  Weight: 90.9 kg

DRUGS (3)
  1. CEFOTAXIM (CEFOTAXIME) [Suspect]
     Active Substance: CEFOTAXIME SODIUM
     Indication: PRODUCT USED FOR UNKNOWN INDICATION
     Dosage: 1 G, Q8H
     Route: 065
     Dates: start: 20200731, end: 20200808
  2. PARACETAMOL [Suspect]
     Active Substance: ACETAMINOPHEN
     Indication: PYREXIA
     Dosage: 1 G, Q6H (EVERY 6 HOUR)
     Route: 065
     Dates: start: 20200802
  3. NUTRIFLEX [Suspect]
     Active Substance: AMINO ACIDS\DEXTROSE\ELECTROLYTES NOS
     Indication: PARENTERAL NUTRITION
     Dosage: UNK
     Route: 051

REACTIONS (2)
  - Transaminases increased [Recovered/Resolved]
  - Thrombophlebitis [Recovered/Resolved]

NARRATIVE: CASE EVENT DATE: 20200806
